FAERS Safety Report 5436708-9 (Version None)
Quarter: 2007Q3

REPORT INFORMATION
  Report Type: 
  Country: None (occurrence: None)
  Receive Date: 20070831
  Receipt Date: 20070828
  Transmission Date: 20080115
  Serious: Yes (Death, Hospitalization)
  Sender: FDA-Public Use
  Company Number: CA-JNJFOC-20070302171

PATIENT
  Sex: Female
  Weight: 51.5 kg

DRUGS (25)
  1. DOXORUBICIN HYDROCHLORIDE [Suspect]
     Indication: OVARIAN CANCER
     Dosage: 78MG TOTAL DOSE ADMINISTERED FROM 14.30 -16.20 ON 16-FEB-2007
     Route: 042
  2. TRABECTEDIN [Suspect]
     Indication: OVARIAN CANCER
  3. ETIDRONATE DISODIUM [Concomitant]
     Indication: OSTEOPOROSIS
     Route: 048
  4. CALCIUM WITH VITAMIN D [Concomitant]
     Indication: OSTEOPOROSIS
     Route: 048
  5. ANTIPHLOGISTINE [Concomitant]
     Indication: ARTHRALGIA
     Route: 061
  6. ALGINIC ACID [Concomitant]
     Indication: DYSPEPSIA
     Route: 048
  7. METOCLOPRAMIDE [Concomitant]
     Indication: DYSPEPSIA
     Route: 048
  8. METOCLOPRAMIDE [Concomitant]
     Indication: NAUSEA
     Route: 048
  9. ONDANSETRON [Concomitant]
     Route: 042
  10. ONDANSETRON [Concomitant]
     Indication: VOMITING
     Route: 042
  11. ONDANSETRON [Concomitant]
     Indication: NAUSEA
     Route: 042
  12. ACETAMINOPHEN [Concomitant]
     Indication: PROPHYLACTIC CHEMOTHERAPY
     Dosage: DAY 1 OF EACH CYCLE
     Route: 048
  13. ACETAMINOPHEN [Concomitant]
     Indication: ARTHRALGIA
     Route: 048
  14. RANITIDINE [Concomitant]
     Indication: DYSPEPSIA
     Route: 048
  15. SENNA [Concomitant]
     Indication: CONSTIPATION PROPHYLAXIS
     Dosage: 1-2 TABLETS PRN
     Route: 048
  16. METOCLOPRAMIDE [Concomitant]
     Indication: VOMITING
     Route: 042
  17. METOCLOPRAMIDE [Concomitant]
     Route: 042
  18. DEXAMETHASONE 0.5MG TAB [Concomitant]
     Route: 042
  19. DEXAMETHASONE 0.5MG TAB [Concomitant]
     Indication: PROPHYLACTIC CHEMOTHERAPY
     Route: 042
  20. DEXAMETHASONE 0.5MG TAB [Concomitant]
     Indication: NAUSEA
     Route: 042
  21. DEXAMETHASONE 0.5MG TAB [Concomitant]
     Indication: VOMITING
     Dosage: DAY 1 OF EACH CYCLE
     Route: 042
  22. ONDANSETRON [Concomitant]
     Indication: DYSPEPSIA
     Route: 048
  23. ONDANSETRON [Concomitant]
     Indication: PROPHYLACTIC CHEMOTHERAPY
     Route: 048
  24. TIGER BALM [Concomitant]
     Indication: ARTHRALGIA
     Route: 061
  25. DEXAMETHASONE 0.5MG TAB [Concomitant]
     Indication: PROPHYLAXIS OF NAUSEA AND VOMITING
     Route: 048

REACTIONS (18)
  - ALOPECIA [None]
  - ANAEMIA [None]
  - CATHETER SITE INFECTION [None]
  - DEHYDRATION [None]
  - FUNGAEMIA [None]
  - HALLUCINATION, VISUAL [None]
  - HYPOCALCAEMIA [None]
  - HYPONATRAEMIA [None]
  - HYPOPHOSPHATAEMIA [None]
  - MALNUTRITION [None]
  - OESOPHAGEAL CANDIDIASIS [None]
  - OESOPHAGITIS [None]
  - ORAL HERPES [None]
  - OVARIAN CANCER [None]
  - PALMAR-PLANTAR ERYTHRODYSAESTHESIA SYNDROME [None]
  - SEPSIS SYNDROME [None]
  - SMALL INTESTINAL OBSTRUCTION [None]
  - SYNCOPE VASOVAGAL [None]
